FAERS Safety Report 9522835 (Version 1)
Quarter: 2013Q3

REPORT INFORMATION
  Report Type: Spontaneous
  Country: US (occurrence: US)
  Receive Date: 20130913
  Receipt Date: 20130913
  Transmission Date: 20140515
  Serious: Yes (Hospitalization)
  Sender: FDA-Public Use
  Company Number: US-LUNDBECK-DKLU1093585

PATIENT
  Age: 8 Month
  Sex: Male

DRUGS (1)
  1. SABRIL (FOR ORAL SOLUTION) [Suspect]
     Indication: CONVULSION
     Route: 048

REACTIONS (2)
  - Blood pressure increased [Unknown]
  - Nephropathy [Unknown]
